FAERS Safety Report 21676280 (Version 2)
Quarter: 2022Q4

REPORT INFORMATION
  Report Type: Report from Study
  Country: CL (occurrence: CL)
  Receive Date: 20221202
  Receipt Date: 20221208
  Transmission Date: 20230113
  Serious: Yes (Life-Threatening, Hospitalization, Other)
  Sender: FDA-Public Use
  Company Number: CL-BRISTOL-MYERS SQUIBB COMPANY-2022-124488

PATIENT
  Age: 72 Year
  Sex: Male
  Weight: 80 kg

DRUGS (15)
  1. NIVOLUMAB [Suspect]
     Active Substance: NIVOLUMAB
     Indication: Hormone-refractory prostate cancer
     Route: 042
     Dates: start: 20220714, end: 20220929
  2. SACCHAROMYCES CEREVISIAE [Concomitant]
     Active Substance: SACCHAROMYCES CEREVISIAE
     Indication: Diarrhoea
     Dosage: DOSE: 2 UNITS NOS
     Route: 048
     Dates: start: 20221006
  3. DECAPEPTYL [Concomitant]
     Indication: Product used for unknown indication
     Route: 030
     Dates: start: 2015
  4. POTASSIUM CHLORIDE [Concomitant]
     Active Substance: POTASSIUM CHLORIDE
     Indication: Hypokalaemia
     Route: 048
     Dates: start: 20221006
  5. POTASSIUM CHLORIDE [Concomitant]
     Active Substance: POTASSIUM CHLORIDE
     Indication: Blood potassium decreased
     Route: 042
     Dates: start: 20221014, end: 20221014
  6. POTASSIUM CHLORIDE [Concomitant]
     Active Substance: POTASSIUM CHLORIDE
     Route: 042
     Dates: start: 20221018, end: 20221018
  7. LOPERAMIDE [Concomitant]
     Active Substance: LOPERAMIDE
     Indication: Diarrhoea
     Route: 048
     Dates: start: 20220804
  8. CELECOXIB [Concomitant]
     Active Substance: CELECOXIB
     Indication: Myalgia
     Route: 048
     Dates: start: 20220810
  9. UREA 10% [Concomitant]
     Indication: Xerosis
     Dosage: DOSE 2 UNITS NOS
     Route: 061
     Dates: start: 20220907
  10. SODIUM CHLORIDE [Concomitant]
     Active Substance: SODIUM CHLORIDE
     Indication: Diarrhoea
     Dosage: DOSE: 1000 UNITS NOS
     Route: 042
     Dates: start: 20221013, end: 20221013
  11. SODIUM CHLORIDE [Concomitant]
     Active Substance: SODIUM CHLORIDE
     Indication: Blood potassium decreased
     Dosage: DOSE: 1000 UNITS NOS
     Route: 042
     Dates: start: 20221014, end: 20221014
  12. SODIUM CHLORIDE [Concomitant]
     Active Substance: SODIUM CHLORIDE
     Dosage: DOSE: 1 UNIT NOS
     Route: 042
     Dates: start: 20221018, end: 20221018
  13. ONDANSETRON [Concomitant]
     Active Substance: ONDANSETRON
     Indication: Nausea
     Route: 042
     Dates: start: 20221013, end: 20221013
  14. ONDANSETRON [Concomitant]
     Active Substance: ONDANSETRON
     Route: 048
     Dates: start: 20221013
  15. PREDNISONE [Concomitant]
     Active Substance: PREDNISONE
     Indication: Diarrhoea
     Route: 048
     Dates: start: 20221013

REACTIONS (1)
  - Autoimmune colitis [Recovered/Resolved]

NARRATIVE: CASE EVENT DATE: 20221019
